FAERS Safety Report 8907835 (Version 2)
Quarter: 2013Q1

REPORT INFORMATION
  Report Type: Spontaneous
  Country: JP (occurrence: JP)
  Receive Date: 20121114
  Receipt Date: 20130201
  Transmission Date: 20140127
  Serious: Yes (Death, Hospitalization)
  Sender: FDA-Public Use
  Company Number: JP-AMGEN-JPNSP2012026043

PATIENT
  Age: 67 Year
  Sex: Female

DRUGS (14)
  1. ENBREL [Suspect]
     Indication: RHEUMATOID ARTHRITIS
     Dosage: 25 MG, WEEKLY
     Route: 058
     Dates: start: 20110904, end: 20120403
  2. RHEUMATREX [Suspect]
     Dosage: 6 MG, WEEKLY
     Route: 048
     Dates: start: 20090904, end: 20091211
  3. RHEUMATREX [Suspect]
     Dosage: 4 MG, WEEKLY
     Route: 048
     Dates: start: 20091212, end: 20100225
  4. RHEUMATREX [Suspect]
     Dosage: 6 MG, WEEKLY
     Route: 048
     Dates: start: 20100226, end: 20101217
  5. RHEUMATREX [Suspect]
     Dosage: 4 MG, WEEKLY
     Route: 048
     Dates: start: 20101218, end: 20120405
  6. PREDNISOLONE [Suspect]
     Indication: RHEUMATOID ARTHRITIS
     Dosage: 2 MG, 2X/DAY
     Route: 048
     Dates: start: 20090904, end: 20100129
  7. PREDNISOLONE [Suspect]
     Dosage: 3 MG, QD
     Route: 048
     Dates: start: 20100130, end: 20100326
  8. PREDNISOLONE [Suspect]
     Dosage: 1 MG, 2X/DAY
     Route: 048
     Dates: start: 20100327, end: 20101007
  9. PREDNISOLONE [Suspect]
     Dosage: 3 MG, QD
     Route: 048
     Dates: start: 20101008, end: 20111211
  10. PREDNISOLONE [Suspect]
     Dosage: 2 MG, 2X/DAY
     Route: 048
     Dates: start: 20111212, end: 20120402
  11. PREDNISOLONE [Suspect]
     Dosage: 3 MG, QD
     Route: 048
     Dates: start: 20120402, end: 20120405
  12. FOLIAMIN [Concomitant]
     Indication: RHEUMATOID ARTHRITIS
     Dosage: 5 MG, WEEKLY
     Route: 048
     Dates: start: 20090904, end: 20120405
  13. CONFATANIN [Concomitant]
     Indication: RHEUMATOID ARTHRITIS
     Dosage: UNK
     Route: 048
     Dates: start: 20090904, end: 20120405
  14. ADEFURONIC [Concomitant]
     Indication: RHEUMATOID ARTHRITIS
     Dosage: UNK
     Route: 054
     Dates: start: 20090904, end: 20120405

REACTIONS (4)
  - Multi-organ failure [Fatal]
  - Cardiac failure [Fatal]
  - Meningitis tuberculous [Fatal]
  - Disseminated tuberculosis [Fatal]
